FAERS Safety Report 13457518 (Version 2)
Quarter: 2017Q2

REPORT INFORMATION
  Report Type: Spontaneous
  Country: US (occurrence: US)
  Receive Date: 20170419
  Receipt Date: 20170525
  Transmission Date: 20170830
  Serious: Yes (Other)
  Sender: FDA-Public Use
  Company Number: US-TEVA-760928ACC

PATIENT
  Age: 36 Year
  Sex: Female

DRUGS (1)
  1. PARAGARD T 380A [Suspect]
     Active Substance: COPPER
     Dosage: 5 1/2 YEARS AGO
     Route: 065
     Dates: start: 2011

REACTIONS (10)
  - Muscle spasms [Unknown]
  - Ectopic pregnancy [Unknown]
  - Procedural pain [Unknown]
  - Abdominal pain [Unknown]
  - Blood urine present [Unknown]
  - Exposure during pregnancy [Unknown]
  - Haemorrhage [Unknown]
  - Oropharyngeal pain [Unknown]
  - Pregnancy on contraceptive [Unknown]
  - Vaginal haemorrhage [Unknown]

NARRATIVE: CASE EVENT DATE: 201704
